FAERS Safety Report 9511411 (Version 2)
Quarter: 2013Q4

REPORT INFORMATION
  Report Type: Report from Study
  Country: US (occurrence: US)
  Receive Date: 20130910
  Receipt Date: 20131003
  Transmission Date: 20140711
  Serious: Yes (Other)
  Sender: FDA-Public Use
  Company Number: US-PURDUE-USA-2013-0106051

PATIENT
  Age: 59 Year
  Sex: Female
  Weight: 112.83 kg

DRUGS (4)
  1. OXYCONTIN (NDA 22-272) [Suspect]
     Indication: BACK PAIN
     Dosage: 40 MG, BID
     Route: 048
  2. OXYCONTIN (NDA 22-272) [Suspect]
     Indication: NEUROPATHY PERIPHERAL
  3. OXYCONTIN (NDA 22-272) [Suspect]
     Indication: LIMB DEFORMITY
  4. OXYCONTIN (NDA 22-272) [Suspect]
     Indication: SPINAL DEFORMITY

REACTIONS (2)
  - Eye operation [Unknown]
  - Neck mass [Unknown]
